FAERS Safety Report 8600968-3 (Version None)
Quarter: 2012Q3

REPORT INFORMATION
  Report Type: 
  Country: None (occurrence: None)
  Receive Date: 20120805
  Receipt Date: 20120724
  Transmission Date: 20120928
  Serious: Yes (Hospitalization)
  Sender: FDA-Public Use
  Company Number: 2012-3481

PATIENT
  Age: 3 Year
  Sex: Female
  Weight: 10.2 kg

DRUGS (1)
  1. INCRELEX [Suspect]
     Indication: PRIMARY INSULIN LIKE GROWTH FACTOR-1 DEFICIENCY
     Dosage: SEE IMAGE
     Route: 058
     Dates: start: 20111022, end: 20120601

REACTIONS (3)
  - PNEUMONIA [None]
  - URINARY TRACT INFECTION [None]
  - SEPSIS [None]
